FAERS Safety Report 7468123-0 (Version None)
Quarter: 2011Q2

REPORT INFORMATION
  Report Type: 
  Country: None (occurrence: None)
  Receive Date: 20110509
  Receipt Date: 20110502
  Transmission Date: 20111010
  Serious: Yes (Hospitalization)
  Sender: FDA-Public Use
  Company Number: US-ELI_LILLY_AND_COMPANY-US201105000966

PATIENT
  Age: 59 Year
  Sex: Male

DRUGS (3)
  1. CIALIS [Suspect]
     Indication: ERECTILE DYSFUNCTION
     Dosage: 20 MG, PRN
     Dates: start: 20090101
  2. HYDROCODONE BITARTRATE [Concomitant]
  3. GABAPENTIN [Concomitant]

REACTIONS (2)
  - SURGERY [None]
  - PAIN [None]
